FAERS Safety Report 11780645 (Version 2)
Quarter: 2016Q1

REPORT INFORMATION
  Report Type: Spontaneous
  Country: US (occurrence: US)
  Receive Date: 20151126
  Receipt Date: 20160119
  Transmission Date: 20160525
  Serious: No
  Sender: FDA-Public Use
  Company Number: US-009507513-1511USA014090

PATIENT

DRUGS (2)
  1. RALTEGRAVIR POTASSIUM [Suspect]
     Active Substance: RALTEGRAVIR POTASSIUM
     Indication: HIV INFECTION
     Dosage: UNKNOWN
  2. ETRAVIRINE [Suspect]
     Active Substance: ETRAVIRINE
     Dosage: UNKNOWN

REACTIONS (1)
  - Treatment failure [Unknown]
